FAERS Safety Report 6498122-7 (Version None)
Quarter: 2009Q4

REPORT INFORMATION
  Report Type: 
  Country: None (occurrence: None)
  Receive Date: 20091215
  Receipt Date: 20091203
  Transmission Date: 20100525
  Serious: Yes (Death, Life-Threatening, Hospitalization)
  Sender: FDA-Public Use
  Company Number: JP-SANOFI-AVENTIS-F01200900088

PATIENT
  Age: 85 Year
  Sex: Male
  Weight: 59.8 kg

DRUGS (13)
  1. CLOPIDOGREL BISULFATE [Suspect]
     Dosage: DOSE TEXT: STARTING DOSE
     Route: 048
     Dates: start: 20080814, end: 20080814
  2. CLOPIDOGREL BISULFATE [Suspect]
     Dosage: DOSE TEXT: MAINTENANCE DOSE
     Route: 048
     Dates: start: 20080815, end: 20081007
  3. ASPIRIN [Concomitant]
     Route: 048
     Dates: start: 20080814, end: 20080814
  4. ASPIRIN [Concomitant]
     Route: 048
     Dates: start: 20080815, end: 20081012
  5. HEPARIN [Concomitant]
     Route: 042
     Dates: start: 20080814, end: 20080814
  6. HEPARIN [Concomitant]
     Route: 042
     Dates: start: 20080814, end: 20080817
  7. CARVEDILOL [Concomitant]
     Indication: HYPERTENSION
     Route: 048
     Dates: start: 20080814, end: 20080821
  8. CARVEDILOL [Concomitant]
     Route: 048
     Dates: start: 20080822, end: 20080829
  9. CARVEDILOL [Concomitant]
     Route: 048
     Dates: start: 20080830, end: 20081012
  10. NICORANDIL [Concomitant]
     Dosage: DOSE TEXT: 6 MG/HOUR
     Route: 042
     Dates: start: 20080814, end: 20080815
  11. NICORANDIL [Concomitant]
     Route: 048
     Dates: start: 20080815, end: 20081012
  12. ROSUVASTATIN [Concomitant]
     Route: 048
     Dates: start: 20080815, end: 20081012
  13. LANSOPRAZOLE [Concomitant]
     Indication: GASTRIC DISORDER
     Route: 048
     Dates: start: 20080815, end: 20081012

REACTIONS (3)
  - FAT EMBOLISM [None]
  - GASTROINTESTINAL HAEMORRHAGE [None]
  - PANCREATIC CARCINOMA [None]
